FAERS Safety Report 18784476 (Version 1)
Quarter: 2021Q1

REPORT INFORMATION
  Report Type: Spontaneous
  Country: US (occurrence: US)
  Receive Date: 20210125
  Receipt Date: 20210125
  Transmission Date: 20210419
  Serious: No
  Sender: FDA-Public Use
  Company Number: US-ROCHE-2517093

PATIENT
  Sex: Male

DRUGS (6)
  1. ETOPOSIDE. [Concomitant]
     Active Substance: ETOPOSIDE
  2. PREDNISONE. [Concomitant]
     Active Substance: PREDNISONE
  3. DOXORUBICIN [Concomitant]
     Active Substance: DOXORUBICIN
  4. RITUXAN [Suspect]
     Active Substance: RITUXIMAB
     Indication: BURKITT^S LYMPHOMA
     Dosage: ONGOING? NO
     Route: 041
  5. VINCRISTINE [Concomitant]
     Active Substance: VINCRISTINE
  6. CYCLOPHOSPHAMIDE. [Concomitant]
     Active Substance: CYCLOPHOSPHAMIDE

REACTIONS (1)
  - Adverse drug reaction [Unknown]
